FAERS Safety Report 7020471-4 (Version None)
Quarter: 2010Q3

REPORT INFORMATION
  Report Type: 
  Country: None (occurrence: None)
  Receive Date: 20100929
  Receipt Date: 20100921
  Transmission Date: 20110219
  Serious: Yes (Hospitalization)
  Sender: FDA-Public Use
  Company Number: FR-ROCHE-717366

PATIENT
  Sex: Female
  Weight: 64 kg

DRUGS (25)
  1. MYCOPHENOLATE MOFETIL [Suspect]
     Route: 048
     Dates: start: 20100701, end: 20100726
  2. MYCOPHENOLATE MOFETIL [Suspect]
     Dosage: DAILY DOSE: 1.5 GRAM OR 2 GRAM
     Route: 048
     Dates: end: 20100809
  3. MYCOPHENOLATE MOFETIL [Suspect]
     Route: 048
     Dates: start: 20100813
  4. SOLUPRED [Suspect]
     Route: 048
     Dates: start: 20100701
  5. SOLUPRED [Suspect]
     Dosage: DECREASED DOSE ACCORDING TO PROTOCOL
     Route: 048
     Dates: start: 20100703
  6. CERTICAN [Suspect]
     Route: 048
     Dates: start: 20100706, end: 20100711
  7. CERTICAN [Suspect]
     Dosage: THERAPY PERMANENTLY DISCONTINUED
     Route: 048
     Dates: start: 20100712, end: 20100728
  8. PROGRAF [Suspect]
     Indication: PRODUCT USED FOR UNKNOWN INDICATION
     Route: 065
  9. BACTRIM [Concomitant]
  10. KALEORID [Concomitant]
  11. FORLAX [Concomitant]
  12. LASIX [Concomitant]
  13. ACUPAN [Concomitant]
  14. NEXIUM [Concomitant]
  15. INSULINE [Concomitant]
  16. SPASFON [Concomitant]
  17. PERFALGAN [Concomitant]
  18. PAROXETINE HCL [Concomitant]
  19. IMOVANE [Concomitant]
  20. CALCIPARINE [Concomitant]
  21. NOVONORM [Concomitant]
  22. SPECIAFOLDINE [Concomitant]
  23. LEXOMIL [Concomitant]
  24. LANTUS [Concomitant]
  25. FUROSEMIDE [Concomitant]

REACTIONS (4)
  - BLOOD CREATININE INCREASED [None]
  - GENITAL HERPES [None]
  - TRANSPLANT REJECTION [None]
  - UROSEPSIS [None]
